FAERS Safety Report 23519040 (Version 1)
Quarter: 2024Q1

REPORT INFORMATION
  Report Type: Spontaneous
  Country: US (occurrence: US)
  Receive Date: 20240213
  Receipt Date: 20240213
  Transmission Date: 20240409
  Serious: Yes (Other)
  Sender: FDA-Public Use
  Company Number: US-BAUSCH-BL-2024-001795

PATIENT
  Age: 28 Year
  Sex: Female

DRUGS (12)
  1. DIASTAT [Suspect]
     Active Substance: DIAZEPAM
     Indication: Seizure
     Route: 065
  2. DAYBUE [Suspect]
     Active Substance: TROFINETIDE
     Indication: Rett syndrome
     Dosage: BID VIA G TUBE, GASTROENTERAL USE
     Route: 065
     Dates: start: 20230816
  3. DAYBUE [Suspect]
     Active Substance: TROFINETIDE
     Dosage: BID VIA G TUBE, GASTROENTERAL USE
     Route: 065
     Dates: start: 20230901
  4. DAYBUE [Suspect]
     Active Substance: TROFINETIDE
     Dosage: QD VIA G TUBE, GASTROENTERAL USE
     Route: 065
     Dates: start: 20230919
  5. DAYBUE [Suspect]
     Active Substance: TROFINETIDE
     Dosage: BID VIA G TUBE, GASTROENTERAL USE
     Route: 065
  6. DAYBUE [Suspect]
     Active Substance: TROFINETIDE
     Dosage: GASTROENTERAL USE
     Route: 065
  7. DAYBUE [Suspect]
     Active Substance: TROFINETIDE
     Dosage: GASTROENTERAL USE, VIA G TUBE
     Route: 065
  8. DAYBUE [Suspect]
     Active Substance: TROFINETIDE
     Route: 065
  9. DAYBUE [Suspect]
     Active Substance: TROFINETIDE
     Dosage: GASTROENTERAL USE
     Route: 065
  10. DAYBUE [Suspect]
     Active Substance: TROFINETIDE
     Dosage: GASTROENTERAL USE
     Route: 065
  11. DAYBUE [Suspect]
     Active Substance: TROFINETIDE
     Dosage: GASTROENTERAL USE
     Route: 065
  12. ERTAPENEM [Suspect]
     Active Substance: ERTAPENEM
     Indication: Device related infection
     Route: 042

REACTIONS (3)
  - Urinary tract infection [Recovered/Resolved]
  - Therapeutic product effect variable [Unknown]
  - Sedation [Unknown]
